FAERS Safety Report 6470389-0 (Version None)
Quarter: 2009Q4

REPORT INFORMATION
  Report Type: 
  Country: None (occurrence: None)
  Receive Date: 20091203
  Receipt Date: 20091123
  Transmission Date: 20100525
  Serious: Yes (Other)
  Sender: FDA-Public Use
  Company Number: DE-PFIZER INC-2009281488

PATIENT
  Age: 49 Year
  Sex: Male
  Weight: 93 kg

DRUGS (2)
  1. GENOTROPIN [Suspect]
     Indication: OFF LABEL USE
     Dosage: UNK
  2. GENOTROPIN [Suspect]
     Indication: MUSCLE BUILDING THERAPY

REACTIONS (1)
  - HYPERTHYROIDISM [None]
